FAERS Safety Report 6604930-1 (Version None)
Quarter: 2010Q1

REPORT INFORMATION
  Report Type: 
  Country: None (occurrence: None)
  Receive Date: 20100226
  Receipt Date: 20091207
  Transmission Date: 20100710
  Serious: Yes (Life-Threatening, Other)
  Sender: FDA-Public Use
  Company Number: US-JNJFOC-20100207851

PATIENT
  Sex: Female
  Weight: 58.97 kg

DRUGS (7)
  1. FENTANYL CITRATE [Suspect]
     Indication: MIGRAINE
     Route: 062
  2. FENTANYL CITRATE [Suspect]
     Route: 062
  3. DURAGESIC-100 [Suspect]
     Indication: MIGRAINE
     Route: 062
  4. DURAGESIC-100 [Suspect]
     Indication: DRUG USE FOR UNKNOWN INDICATION
     Route: 062
  5. ZOLOFT [Concomitant]
     Indication: DEPRESSION
     Route: 048
  6. METOPROLOL TARTRATE [Concomitant]
     Indication: HYPERTENSION
     Route: 048
  7. WELLBUTRIN [Concomitant]
     Indication: DEPRESSION
     Route: 048

REACTIONS (6)
  - BLINDNESS [None]
  - CEREBROVASCULAR ACCIDENT [None]
  - DRUG EFFECT DECREASED [None]
  - MIGRAINE [None]
  - PRODUCT ADHESION ISSUE [None]
  - WRONG TECHNIQUE IN DRUG USAGE PROCESS [None]
